FAERS Safety Report 25749414 (Version 3)
Quarter: 2025Q3

REPORT INFORMATION
  Report Type: Spontaneous
  Country: US (occurrence: US)
  Receive Date: 20250902
  Receipt Date: 20250916
  Transmission Date: 20251020
  Serious: No
  Sender: AMGEN
  Company Number: US-AMGEN-USASP2025171506

PATIENT
  Age: 80 Year
  Sex: Male

DRUGS (7)
  1. NEULASTA [Suspect]
     Active Substance: PEGFILGRASTIM
     Indication: Neutropenia
     Dosage: 6 MILLIGRAM, Q4WK
     Route: 065
  2. NEULASTA [Suspect]
     Active Substance: PEGFILGRASTIM
     Dosage: 6 MILLIGRAM, Q4WK
     Route: 065
  3. HYALURONIDASE [Concomitant]
     Active Substance: HYALURONIDASE
     Dosage: UNK UNK, Q4WK,D1
     Route: 065
  4. HYALURONIDASE [Concomitant]
     Active Substance: HYALURONIDASE
     Indication: Follicular lymphoma stage I
     Route: 065
  5. HYALURONIDASE [Concomitant]
     Active Substance: HYALURONIDASE
     Indication: Product used for unknown indication
     Route: 065
  6. RITUXIMAB [Concomitant]
     Active Substance: RITUXIMAB
     Indication: Follicular lymphoma stage I
     Dosage: UNK UNK, Q4WK, D1
     Route: 065
  7. BENDAMUSTINE [Concomitant]
     Active Substance: BENDAMUSTINE
     Indication: Follicular lymphoma stage I

REACTIONS (3)
  - Unintentional medical device removal [Unknown]
  - Device adhesion issue [Unknown]
  - Off label use [Unknown]

NARRATIVE: CASE EVENT DATE: 20250822
